FAERS Safety Report 17934975 (Version 1)
Quarter: 2020Q2

REPORT INFORMATION
  Report Type: Spontaneous
  Country: CA (occurrence: CA)
  Receive Date: 20200624
  Receipt Date: 20200624
  Transmission Date: 20200714
  Serious: Yes (Other)
  Sender: FDA-Public Use
  Company Number: CA-ACCORD-186638

PATIENT
  Age: 5 Year
  Sex: Male
  Weight: 18 kg

DRUGS (10)
  1. ETOPOSIDE. [Suspect]
     Active Substance: ETOPOSIDE
     Indication: NEUROBLASTOMA
     Dosage: NOT SPECIFIED
     Route: 042
  2. CARBOPLATIN. [Concomitant]
     Active Substance: CARBOPLATIN
     Dosage: SOLUTION INTRAVENOUS
  3. VINCRISTINE [Concomitant]
     Active Substance: VINCRISTINE
     Dosage: NOT SPECIFIED
  4. CISPLATIN. [Concomitant]
     Active Substance: CISPLATIN
     Dosage: SOLUTION INTRAVENOUS
  5. PREDNISONE. [Suspect]
     Active Substance: PREDNISONE
     Indication: ANTIINFLAMMATORY THERAPY
     Dosage: NOT SPECIFIED
     Route: 048
  6. PROCYTOX [Suspect]
     Active Substance: CYCLOPHOSPHAMIDE
     Indication: NEUROBLASTOMA
     Dosage: POWDER FOR SOLUTION PARENTERAL (UNSPECIFIED
     Route: 042
  7. DOXORUBICIN [Suspect]
     Active Substance: DOXORUBICIN
     Indication: NEUROBLASTOMA
     Route: 042
  8. HYDROCORTISONE. [Suspect]
     Active Substance: HYDROCORTISONE
     Indication: NEUROBLASTOMA
     Route: 042
  9. UNITUXIN [Concomitant]
     Active Substance: DINUTUXIMAB
     Dosage: SINGLE USE VIAL, SOLUTION INTRAVENOUS
  10. INTERLEUKIN-2 [Suspect]
     Active Substance: ALDESLEUKIN
     Indication: NEUROBLASTOMA
     Route: 042

REACTIONS (1)
  - Cardiotoxicity [Unknown]
